FAERS Safety Report 17311629 (Version 1)
Quarter: 2020Q1

REPORT INFORMATION
  Report Type: Spontaneous
  Country: US (occurrence: US)
  Receive Date: 20200123
  Receipt Date: 20200123
  Transmission Date: 20200409
  Serious: No
  Sender: FDA-Public Use
  Company Number: US-ROCHE-2263318

PATIENT

DRUGS (5)
  1. RITUXIMAB. [Suspect]
     Active Substance: RITUXIMAB
     Indication: RHEUMATOID ARTHRITIS
     Route: 065
     Dates: start: 2010
  2. LYRICA [Concomitant]
     Active Substance: PREGABALIN
  3. METHOTREXATE. [Concomitant]
     Active Substance: METHOTREXATE
  4. XELJANZ [Concomitant]
     Active Substance: TOFACITINIB CITRATE
  5. IMURAN [Concomitant]
     Active Substance: AZATHIOPRINE

REACTIONS (3)
  - Productive cough [Unknown]
  - Lower respiratory tract congestion [Unknown]
  - Fatigue [Unknown]
